FAERS Safety Report 15699200 (Version 1)
Quarter: 2018Q4

REPORT INFORMATION
  Report Type: Spontaneous
  Country: US (occurrence: US)
  Receive Date: 20181207
  Receipt Date: 20181207
  Transmission Date: 20190205
  Serious: Yes (Other)
  Sender: FDA-Public Use
  Company Number: None

PATIENT
  Age: 77 Year
  Sex: Male
  Weight: 74.25 kg

DRUGS (7)
  1. METOPROLOL SUCCINATE ER [Suspect]
     Active Substance: METOPROLOL SUCCINATE
     Indication: PRODUCT USED FOR UNKNOWN INDICATION
     Dosage: ?          QUANTITY:30 TABLET(S);OTHER ROUTE:WITH FOODS?
     Dates: end: 20181205
  2. LOSARTAN POTASSIUM 50 MG [Concomitant]
     Active Substance: LOSARTAN POTASSIUM
  3. B12 1000CG/C 500MG [Concomitant]
  4. ASPIRIN 0.81 [Concomitant]
  5. D3-5000 [Concomitant]
  6. PRAVASTATIN SODIUM. [Concomitant]
     Active Substance: PRAVASTATIN SODIUM
  7. METOPROLOL TARTRATE 25 MG [Concomitant]
     Active Substance: METOPROLOL TARTRATE

REACTIONS (4)
  - Arthralgia [None]
  - Gait disturbance [None]
  - Dysstasia [None]
  - Product substitution issue [None]

NARRATIVE: CASE EVENT DATE: 19420429
